FAERS Safety Report 5367375-0 (Version None)
Quarter: 2007Q2

REPORT INFORMATION
  Report Type: 
  Country: None (occurrence: None)
  Receive Date: 20070622
  Receipt Date: 20060629
  Transmission Date: 20071010
  Serious: No
  Sender: FDA-Public Use
  Company Number: US-ASTRAZENECA-2006UW13653

PATIENT
  Age: 78 Year
  Sex: Female
  Weight: 70.3 kg

DRUGS (13)
  1. PULMICORT [Suspect]
     Indication: MULTIPLE ALLERGIES
     Route: 055
     Dates: end: 20060501
  2. PULMICORT [Suspect]
     Route: 055
     Dates: start: 20060617
  3. FORADIL [Concomitant]
  4. VERELAN [Concomitant]
  5. LISINOPRIL [Concomitant]
  6. HYDROCHLOROTHIAZIDE [Concomitant]
  7. PRAVACHOL [Concomitant]
  8. ONE-A-DAY [Concomitant]
  9. MAGNESIUM SULFATE [Concomitant]
  10. GLUCOSAMINE [Concomitant]
  11. CO Q10 [Concomitant]
  12. FISH OIL [Concomitant]
  13. ALBUTEROL [Concomitant]

REACTIONS (2)
  - BLOOD GLUCOSE FLUCTUATION [None]
  - HYPERHIDROSIS [None]
